FAERS Safety Report 6895921-4 (Version None)
Quarter: 2010Q3

REPORT INFORMATION
  Report Type: 
  Country: None (occurrence: None)
  Receive Date: 20100802
  Receipt Date: 20100730
  Transmission Date: 20110219
  Serious: Yes (Other)
  Sender: FDA-Public Use
  Company Number: GXKR2010DE08475

PATIENT
  Sex: Female

DRUGS (1)
  1. VENLAFAXIN 1A PHARMA (NGX) [Suspect]
     Indication: DEPRESSION
     Dosage: 37.5 MG, QD
     Route: 048

REACTIONS (5)
  - COMA [None]
  - HALLUCINATION [None]
  - LOSS OF CONSCIOUSNESS [None]
  - SHOCK [None]
  - TREMOR [None]
